FAERS Safety Report 6176821-4 (Version None)
Quarter: 2009Q2

REPORT INFORMATION
  Report Type: 
  Country: None (occurrence: None)
  Receive Date: 20090501
  Receipt Date: 20090423
  Transmission Date: 20091009
  Serious: Yes (Other)
  Sender: FDA-Public Use
  Company Number: PHHY2009BR15480

PATIENT
  Age: 25 Year
  Sex: Female
  Weight: 59 kg

DRUGS (5)
  1. FORASEQ [Suspect]
     Indication: BRONCHITIS
     Dosage: ONE INHALATION IN THE MORNING AND ANOTHER ONE AT NIGHT
     Dates: start: 20050101
  2. FORASEQ [Suspect]
     Indication: RHINITIS ALLERGIC
  3. SERETIDE [Concomitant]
     Indication: BRONCHITIS
  4. SERETIDE [Concomitant]
     Indication: RHINITIS ALLERGIC
  5. VACCINES [Concomitant]

REACTIONS (4)
  - BRONCHITIS [None]
  - DYSPNOEA [None]
  - RETCHING [None]
  - TREATMENT NONCOMPLIANCE [None]
